FAERS Safety Report 10678946 (Version 5)
Quarter: 2015Q2

REPORT INFORMATION
  Report Type: Report from Study
  Country: US (occurrence: US)
  Receive Date: 20141229
  Receipt Date: 20150624
  Transmission Date: 20150821
  Serious: Yes (Hospitalization)
  Sender: FDA-Public Use
  Company Number: US-SA-2014SA082082

PATIENT
  Age: 70 Year
  Sex: Female

DRUGS (7)
  1. AUBAGIO [Suspect]
     Active Substance: TERIFLUNOMIDE
     Indication: MULTIPLE SCLEROSIS
     Dosage: PRODUCT STARTED: 6 MONTHS AGO
     Route: 048
     Dates: start: 20150429
  2. BOTOX [Concomitant]
     Active Substance: ONABOTULINUMTOXINA
     Indication: BLADDER DISORDER
  3. BACTRIM DS [Concomitant]
     Active Substance: SULFAMETHOXAZOLE\TRIMETHOPRIM
  4. LYRICA [Concomitant]
     Active Substance: PREGABALIN
  5. MACRODANTIN [Concomitant]
     Active Substance: NITROFURANTOIN
  6. CIPROFLOXACIN. [Concomitant]
     Active Substance: CIPROFLOXACIN
     Indication: URINARY TRACT INFECTION
  7. AUBAGIO [Suspect]
     Active Substance: TERIFLUNOMIDE
     Indication: MULTIPLE SCLEROSIS
     Dosage: PRODUCT STARTED: 6 MONTHS AGO
     Route: 048
     Dates: start: 20140314

REACTIONS (6)
  - Memory impairment [Unknown]
  - Product blister packaging issue [Unknown]
  - Automatic bladder [Not Recovered/Not Resolved]
  - Diarrhoea [Unknown]
  - Urinary incontinence [Unknown]
  - Alopecia [Unknown]
